FAERS Safety Report 7954773-1 (Version None)
Quarter: 2011Q4

REPORT INFORMATION
  Report Type: 
  Country: None (occurrence: None)
  Receive Date: 20111202
  Receipt Date: 20111129
  Transmission Date: 20120403
  Serious: Yes (Other)
  Sender: FDA-Public Use
  Company Number: ES-PFIZER INC-2011291059

PATIENT
  Age: 32 Year
  Sex: Female

DRUGS (2)
  1. OXALIPLATIN [Concomitant]
     Indication: NON-HODGKIN'S LYMPHOMA
     Dosage: 100 MG/M2, (ON DAY 1) EVERY 3 WEEKS
  2. GEMCITABINE HYDROCHLORIDE [Suspect]
     Indication: NON-HODGKIN'S LYMPHOMA
     Dosage: 1000 MG/M2, (ON DAY 1 AND 8) EVERY 3 WEEKS

REACTIONS (1)
  - ACUTE FEBRILE NEUTROPHILIC DERMATOSIS [None]
